FAERS Safety Report 5528357-9 (Version None)
Quarter: 2007Q4

REPORT INFORMATION
  Report Type: 
  Country: None (occurrence: None)
  Receive Date: 20071128
  Receipt Date: 20071123
  Transmission Date: 20080405
  Serious: Yes (Death, Life-Threatening, Hospitalization)
  Sender: FDA-Public Use
  Company Number: FR-AVENTIS-200713726FR

PATIENT
  Age: 74 Year
  Sex: Female

DRUGS (16)
  1. LASIX [Suspect]
     Route: 042
     Dates: start: 20070828, end: 20070829
  2. LASIX [Suspect]
     Route: 042
     Dates: start: 20070901, end: 20070904
  3. INIPOMP                            /01263201/ [Suspect]
     Route: 042
     Dates: start: 20070806, end: 20070910
  4. METOCLOPRAMIDE HCL [Suspect]
     Indication: NAUSEA
     Dates: start: 20070823, end: 20070824
  5. METOCLOPRAMIDE HCL [Suspect]
     Dates: start: 20070826, end: 20070826
  6. METOCLOPRAMIDE HCL [Suspect]
     Dates: start: 20070905, end: 20070907
  7. TRAMADOL HCL [Concomitant]
     Dates: start: 20070824, end: 20070826
  8. SOLU-MEDROL [Concomitant]
     Route: 042
     Dates: start: 20070907, end: 20070901
  9. LEXOMIL [Concomitant]
     Route: 048
     Dates: start: 20070823, end: 20070825
  10. PREDNISONE TAB [Concomitant]
     Route: 048
     Dates: start: 20070801
  11. PREDNISONE TAB [Concomitant]
     Route: 048
     Dates: start: 20070101, end: 20070906
  12. CLAMOXYL                           /00249601/ [Concomitant]
     Dates: start: 20070822, end: 20070828
  13. PERFALGAN [Concomitant]
     Route: 042
     Dates: start: 20070907, end: 20070909
  14. OFLOCET                            /00731801/ [Concomitant]
     Dates: end: 20070822
  15. LOVENOX [Concomitant]
     Dates: end: 20070823
  16. VITAMIN K1 [Concomitant]
     Dates: start: 20070822, end: 20070910

REACTIONS (1)
  - TOXIC EPIDERMAL NECROLYSIS [None]
